FAERS Safety Report 6128097-1 (Version None)
Quarter: 2009Q1

REPORT INFORMATION
  Report Type: 
  Country: None (occurrence: None)
  Receive Date: 20090323
  Receipt Date: 20081222
  Transmission Date: 20090719
  Serious: Yes (Death, Life-Threatening, Hospitalization, Other)
  Sender: FDA-Public Use
  Company Number: US-BRISTOL-MYERS SQUIBB COMPANY-14553838

PATIENT
  Age: 59 Year
  Sex: Male
  Weight: 66 kg

DRUGS (20)
  1. CETUXIMAB [Suspect]
     Indication: NON-SMALL CELL LUNG CANCER METASTATIC
     Route: 042
     Dates: start: 20081216, end: 20081216
  2. PACLITAXEL [Suspect]
     Indication: NON-SMALL CELL LUNG CANCER METASTATIC
     Route: 042
     Dates: start: 20081216, end: 20081216
  3. CARBOPLATIN [Suspect]
     Indication: NON-SMALL CELL LUNG CANCER METASTATIC
     Route: 042
     Dates: start: 20081216, end: 20081216
  4. BEVACIZUMAB [Suspect]
     Indication: NON-SMALL CELL LUNG CANCER METASTATIC
  5. ASPIRIN [Concomitant]
     Indication: CARDIOVASCULAR EVENT PROPHYLAXIS
     Dates: start: 19990101
  6. METOPROLOL TARTRATE [Concomitant]
     Indication: HYPERTENSION
     Dates: start: 19990101
  7. NIACIN [Concomitant]
     Indication: HIGH DENSITY LIPOPROTEIN DECREASED
     Dates: start: 20040101
  8. ZOCOR [Concomitant]
     Indication: BLOOD CHOLESTEROL INCREASED
     Dates: start: 19990101
  9. TYLENOL (CAPLET) [Concomitant]
     Indication: ARTHRITIS
     Dates: start: 20020101
  10. EUCERIN [Concomitant]
     Indication: DRY SKIN
     Dosage: LOTION
     Dates: start: 19990101
  11. PRINIVIL [Concomitant]
     Indication: HYPERTENSION
     Dates: start: 20050101
  12. OXYCODONE HCL [Concomitant]
     Indication: CANCER PAIN
     Dosage: 1 DOSAGEFORM= 5-10 MG EVERY 4 HOURS AS NEEDED
     Dates: start: 20081120
  13. OXYCONTIN [Concomitant]
     Indication: CANCER PAIN
     Dates: start: 20081120
  14. DOCUSATE SODIUM [Concomitant]
     Indication: CONSTIPATION
     Dates: start: 19990101
  15. VITAMIN K [Concomitant]
     Indication: COAGULATION TIME ABNORMAL
     Dates: start: 20081205, end: 20081207
  16. MEGACE [Concomitant]
     Indication: WEIGHT DECREASED
     Dates: start: 20081029
  17. LACTULOSE [Concomitant]
     Indication: CONSTIPATION
     Dates: start: 20081217
  18. ZOFRAN [Concomitant]
     Dosage: AS NEEDED
     Dates: start: 20081217
  19. PROCHLORPERAZINE [Concomitant]
     Dates: start: 20081217
  20. DEXAMETHASONE [Concomitant]
     Dosage: 20MG, THE NIGHT BEFORE CHEMOTHERAPY
     Dates: start: 20081215, end: 20081215

REACTIONS (1)
  - SEPSIS [None]
